FAERS Safety Report 13455754 (Version 1)
Quarter: 2017Q2

REPORT INFORMATION
  Report Type: Spontaneous
  Country: US (occurrence: US)
  Receive Date: 20170418
  Receipt Date: 20170418
  Transmission Date: 20170830
  Serious: No
  Sender: FDA-Public Use
  Company Number: US-BAYER-2017-070056

PATIENT
  Age: 7 Year

DRUGS (2)
  1. CLARITIN [Suspect]
     Active Substance: LORATADINE
     Indication: HYPERSENSITIVITY
     Route: 031
  2. CLARITIN [Suspect]
     Active Substance: LORATADINE
     Indication: VIRAL UPPER RESPIRATORY TRACT INFECTION

REACTIONS (2)
  - Incorrect route of drug administration [None]
  - Drug ineffective [None]
